FAERS Safety Report 6454289-8 (Version None)
Quarter: 2009Q4

REPORT INFORMATION
  Report Type: 
  Country: None (occurrence: None)
  Receive Date: 20091124
  Receipt Date: 20091111
  Transmission Date: 20100525
  Serious: Yes (Other)
  Sender: FDA-Public Use
  Company Number: IE-ELI_LILLY_AND_COMPANY-IE200911003375

PATIENT
  Sex: Female

DRUGS (2)
  1. ZYPREXA [Suspect]
     Dates: start: 20090101
  2. ANALGESICS [Concomitant]
     Indication: PAIN

REACTIONS (1)
  - HAEMOLYTIC ANAEMIA [None]
